FAERS Safety Report 15351852 (Version 1)
Quarter: 2018Q3

REPORT INFORMATION
  Report Type: Spontaneous
  Country: US (occurrence: US)
  Receive Date: 20180829
  Receipt Date: 20180829
  Transmission Date: 20181010
  Serious: No
  Sender: FDA-Public Use
  Company Number: None

PATIENT
  Age: 51 Year
  Sex: Female

DRUGS (1)
  1. COPAXONE [Suspect]
     Active Substance: GLATIRAMER ACETATE
     Dates: start: 20170728, end: 20180828

REACTIONS (3)
  - Therapy non-responder [None]
  - Symptom recurrence [None]
  - Gait disturbance [None]

NARRATIVE: CASE EVENT DATE: 20180828
